FAERS Safety Report 8409773-4 (Version None)
Quarter: 2012Q2

REPORT INFORMATION
  Report Type: 
  Country: None (occurrence: None)
  Receive Date: 20120605
  Receipt Date: 20120529
  Transmission Date: 20120825
  Serious: Yes (Hospitalization)
  Sender: FDA-Public Use
  Company Number: US-BAYER-2011-120154

PATIENT
  Age: 47 Year
  Sex: Female
  Weight: 102.4 kg

DRUGS (14)
  1. TOPAMAX [Concomitant]
     Indication: MIGRAINE
     Dosage: 25 MG, BID
     Route: 048
     Dates: start: 20030101
  2. DIURETICS [Concomitant]
     Dosage: UNK
     Dates: start: 20030101, end: 20050101
  3. ANTIBIOTICS [Concomitant]
     Dosage: UNK
     Dates: start: 20030101, end: 20090101
  4. MAXALT [Concomitant]
     Indication: MIGRAINE
     Dosage: UNK
     Dates: start: 20050101
  5. PLAVIX [Concomitant]
     Indication: THROMBOPHLEBITIS SUPERFICIAL
  6. YASMIN [Suspect]
     Indication: OVARIAN CYST
  7. TOPAMAX [Concomitant]
     Dosage: 25 MG, BID
  8. ALPRAZOLAM [Concomitant]
     Indication: ANXIETY
     Dosage: UNK
     Dates: start: 20050101
  9. AVALIDE [Concomitant]
     Indication: HYPERTENSION
     Dosage: UNK
     Dates: start: 20050401
  10. ASPIRIN [Concomitant]
  11. YASMIN [Suspect]
  12. YASMIN [Suspect]
     Indication: ACNE
     Dosage: UNK
     Dates: start: 20000101, end: 20050101
  13. YASMIN [Suspect]
     Indication: PREMENSTRUAL SYNDROME
  14. PLAVIX [Concomitant]
     Indication: ANTICOAGULANT THERAPY
     Dosage: 75 MG, QD
     Route: 048

REACTIONS (5)
  - ANXIETY [None]
  - EMOTIONAL DISTRESS [None]
  - DEEP VEIN THROMBOSIS [None]
  - PAIN [None]
  - INJURY [None]
